FAERS Safety Report 15037566 (Version 5)
Quarter: 2019Q1

REPORT INFORMATION
  Report Type: Spontaneous
  Country: SK (occurrence: SK)
  Receive Date: 20180620
  Receipt Date: 20190304
  Transmission Date: 20190417
  Serious: Yes (Other)
  Sender: FDA-Public Use
  Company Number: SK-MYLANLABS-2018M1016457

PATIENT
  Age: 62 Year
  Sex: Female

DRUGS (20)
  1. BENDAMUSTINE HYDROCHLORIDE. [Suspect]
     Active Substance: BENDAMUSTINE HYDROCHLORIDE
     Indication: B-CELL LYMPHOMA
     Dosage: UNK, TWO ADMINISTRATIONS
     Route: 042
  2. BISULEPIN [Suspect]
     Active Substance: BISULEPIN
     Indication: PRODUCT USED FOR UNKNOWN INDICATION
     Dosage: 2 MILLIGRAM, (2 MG, HALF HOUR BEFORE CHEMOTHERAPY ADMINISTRATION)
     Route: 042
  3. LEVACT [Suspect]
     Active Substance: BENDAMUSTINE HYDROCHLORIDE
     Indication: B-CELL LYMPHOMA
     Dosage: UNK, CYCLE
     Route: 058
  4. RITUXIMAB. [Suspect]
     Active Substance: RITUXIMAB
     Indication: B-CELL LYMPHOMA STAGE III
     Dosage: UNK
     Route: 058
  5. RITUXIMAB. [Suspect]
     Active Substance: RITUXIMAB
     Indication: NON-HODGKIN^S LYMPHOMA STAGE III
  6. BENDAMUSTINE HYDROCHLORIDE. [Suspect]
     Active Substance: BENDAMUSTINE HYDROCHLORIDE
     Indication: B-CELL LYMPHOMA STAGE III
     Dosage: UNK, TWO ADMINISTRATIONS
     Route: 058
  7. LEVACT [Suspect]
     Active Substance: BENDAMUSTINE HYDROCHLORIDE
     Indication: B-CELL LYMPHOMA STAGE III
     Dosage: 2 MILLIGRAM, CYCLE
     Route: 042
  8. IBUPROFEN. [Suspect]
     Active Substance: IBUPROFEN
     Dosage: 400 MILLIGRAM, (400 MG, UNKNOWN FREQ. (1/2 HOURS PRIOR TO THE ADMINISTRATION)   )
     Route: 048
  9. MABTHERA [Suspect]
     Active Substance: RITUXIMAB
     Indication: B-CELL LYMPHOMA STAGE III
     Dosage: UNK, (DOSAGE FORM: UNKNOWN, SECOND DOSE   )
     Route: 058
  10. MABTHERA [Suspect]
     Active Substance: RITUXIMAB
     Dosage: UNK, (DOSAGE FORM: UNKNOWN, START PERIOD 3 DAYS   )
     Route: 042
  11. RITUXIMAB. [Suspect]
     Active Substance: RITUXIMAB
     Indication: B-CELL LYMPHOMA
  12. IBUPROFEN. [Suspect]
     Active Substance: IBUPROFEN
     Dosage: 800 MILLIGRAM
     Route: 048
  13. BENDAMUSTINE HYDROCHLORIDE. [Suspect]
     Active Substance: BENDAMUSTINE HYDROCHLORIDE
     Indication: NON-HODGKIN^S LYMPHOMA STAGE III
     Dosage: 2 DOSAGE FORM
     Route: 058
  14. DEXAMETHASONE. [Concomitant]
     Active Substance: DEXAMETHASONE
     Indication: B-CELL LYMPHOMA
     Dosage: 24 DOSAGE FORM, (24 DF, HALF HOUR BEFORE CHEMOTHERAPY ADMINISTRATION)
     Route: 042
  15. BISULEPIN [Suspect]
     Active Substance: BISULEPIN
     Dosage: 2 MILLIGRAM, (2 MG, UNKNOWN FREQ. (1/2 HOURS PRIOR TO THE ADMINISTRATION))
     Route: 042
  16. DEXAMETHASONE. [Concomitant]
     Active Substance: DEXAMETHASONE
     Dosage: 48 DOSAGE FORM, (48 DF, HALF HOUR BEFORE CHEMOTHERAPY ADMINISTRATION)
     Route: 042
  17. DEXAMETHASONE. [Concomitant]
     Active Substance: DEXAMETHASONE
     Dosage: 24 MILLIGRAM, (24 MG, UNKNOWN FREQ. (1/2 HOURS PRIOR TO THE ADMINISTRATION))
     Route: 042
  18. IBUPROFEN. [Suspect]
     Active Substance: IBUPROFEN
     Indication: PRODUCT USED FOR UNKNOWN INDICATION
     Dosage: 400 MILLIGRAM, (HALF HOUR BEFORE CHEMOTHERAPY ADMINISTRATION)
     Route: 048
  19. BISULEPIN [Suspect]
     Active Substance: BISULEPIN
     Dosage: 4 MILLIGRAM, (4 MG, HALF HOUR BEFORE CHEMOTHERAPY ADMINISTRATION)
     Route: 042
  20. BISULEPIN [Suspect]
     Active Substance: BISULEPIN
     Dosage: 4 UNK
     Route: 042

REACTIONS (9)
  - Rash pruritic [Recovered/Resolved]
  - Abdominal migraine [Recovered/Resolved]
  - Abdominal pain lower [Recovered/Resolved]
  - Application site pruritus [Recovered/Resolved]
  - Injection site rash [Recovered/Resolved]
  - Abdominal pain [Recovered/Resolved]
  - Incorrect route of product administration [Unknown]
  - Application site rash [Recovered/Resolved]
  - Rash [Recovered/Resolved]
